FAERS Safety Report 13256231 (Version 2)
Quarter: 2017Q2

REPORT INFORMATION
  Report Type: Spontaneous
  Country: IN (occurrence: IN)
  Receive Date: 20170221
  Receipt Date: 20170511
  Transmission Date: 20170830
  Serious: Yes (Other)
  Sender: FDA-Public Use
  Company Number: IN-PFIZER INC-2017061910

PATIENT
  Age: 40 Year
  Sex: Female

DRUGS (2)
  1. LETROZOLE. [Concomitant]
     Active Substance: LETROZOLE
     Dosage: 2.5 MG, MONTHLY
  2. PALBACE [Suspect]
     Active Substance: PALBOCICLIB
     Indication: BREAST CANCER METASTATIC
     Dosage: 125 MG, 1X/DAY
     Route: 048
     Dates: start: 20170105

REACTIONS (8)
  - Epistaxis [Recovered/Resolved]
  - Weight decreased [Unknown]
  - Vomiting [Unknown]
  - Odynophagia [Unknown]
  - Fatigue [Unknown]
  - Oral pain [Unknown]
  - Nausea [Unknown]
  - Mouth ulceration [Recovered/Resolved]
